FAERS Safety Report 6019351-2 (Version None)
Quarter: 2008Q4

REPORT INFORMATION
  Report Type: 
  Country: None (occurrence: None)
  Receive Date: 20081224
  Receipt Date: 20081219
  Transmission Date: 20090506
  Serious: Yes (Hospitalization)
  Sender: FDA-Public Use
  Company Number: JP-ASTRAZENECA-2008AP09813

PATIENT
  Age: 37 Year
  Sex: Male

DRUGS (3)
  1. OMEPRAL INJECTION 20 [Suspect]
     Dosage: DOSE UNKNOWN
     Route: 042
     Dates: end: 20081203
  2. OMEPRAL TABLETS 20 [Suspect]
     Dosage: DOSE UNKNOWN
     Route: 048
  3. GASTER [Suspect]
     Dosage: DOSE UNKNOWN
     Route: 042
     Dates: start: 20081204, end: 20081210

REACTIONS (1)
  - RHABDOMYOLYSIS [None]
